FAERS Safety Report 4337354-0 (Version None)
Quarter: 2004Q2

REPORT INFORMATION
  Report Type: 
  Country: None (occurrence: None)
  Receive Date: 20040413
  Receipt Date: 20040216
  Transmission Date: 20050107
  Serious: Yes (Disabling)
  Sender: FDA-Public Use
  Company Number: 200412138GDDC

PATIENT
  Age: 76 Year
  Sex: Male

DRUGS (14)
  1. GLYBURIDE [Suspect]
     Indication: DIABETES MELLITUS
     Route: 048
  2. BACTRIM [Suspect]
     Indication: PNEUMOCYSTIS CARINII PNEUMONIA
     Route: 048
     Dates: start: 20040123, end: 20040128
  3. DIGOSIN [Suspect]
     Indication: ATRIAL FIBRILLATION
     Route: 042
     Dates: start: 20040115, end: 20040115
  4. CORTICOSTEROIDS [Suspect]
     Indication: DRUG USE FOR UNKNOWN INDICATION
     Dosage: DOSE: UNK
  5. NEOPHYLLIN [Suspect]
     Indication: BRONCHITIS
     Route: 042
     Dates: start: 20040114, end: 20040121
  6. MODACIN [Suspect]
     Indication: BRONCHITIS
     Route: 042
     Dates: start: 20040114, end: 20040118
  7. MINOMYCIN [Concomitant]
     Dosage: DOSE: UNK
     Dates: start: 20040114, end: 20040118
  8. CLINDAMYCIN HCL [Concomitant]
     Dosage: DOSE: UNK
     Dates: start: 20040119, end: 20040121
  9. CLARITH [Concomitant]
     Dosage: DOSE: UNK
     Dates: start: 20040122, end: 20040128
  10. MEROPEN [Concomitant]
     Dosage: DOSE: UNK
     Dates: start: 20040119, end: 20040126
  11. SOLU-MEDROL [Concomitant]
     Dosage: DOSE: UNK
     Dates: start: 20040114, end: 20040117
  12. VENOGLOBULIN [Concomitant]
     Dosage: DOSE: UNK
     Dates: start: 20040114, end: 20040118
  13. DIFLUCAN [Concomitant]
     Dosage: DOSE: UNK
     Dates: start: 20040120, end: 20040123
  14. GASTER [Concomitant]
     Dosage: DOSE: UNK
     Dates: start: 20040123, end: 20040128

REACTIONS (11)
  - BLOOD ALKALINE PHOSPHATASE INCREASED [None]
  - BLOOD LACTATE DEHYDROGENASE INCREASED [None]
  - BLOOD POTASSIUM ABNORMAL [None]
  - DYSGEUSIA [None]
  - HAEMATOCRIT DECREASED [None]
  - LYMPHOCYTE PERCENTAGE DECREASED [None]
  - MONOCYTE PERCENTAGE DECREASED [None]
  - NEUTROPHIL PERCENTAGE INCREASED [None]
  - PAROSMIA [None]
  - PLATELET COUNT DECREASED [None]
  - RED BLOOD CELL COUNT DECREASED [None]
